FAERS Safety Report 24652443 (Version 4)
Quarter: 2024Q4

REPORT INFORMATION
  Report Type: Report from Study
  Country: DE (occurrence: DE)
  Receive Date: 20241122
  Receipt Date: 20241218
  Transmission Date: 20250114
  Serious: Yes (Death, Hospitalization)
  Sender: ABBVIE
  Company Number: DE-ABBVIE-6015262

PATIENT
  Age: 72 Year
  Sex: Male

DRUGS (2)
  1. FOSCARBIDOPA\FOSLEVODOPA [Suspect]
     Active Substance: FOSCARBIDOPA\FOSLEVODOPA
     Indication: Parkinson^s disease
     Dosage: CRN: 0.22 ML/H, CR: 0.30 ML/H, CRH: 0.36 ML/H, ED: 0.15 ML?LAST ADMINISTRATION DATE 2024
     Route: 058
     Dates: start: 20240610
  2. FOSCARBIDOPA\FOSLEVODOPA [Suspect]
     Active Substance: FOSCARBIDOPA\FOSLEVODOPA
     Dosage: DRUG START DATE: 2024
     Route: 058

REACTIONS (2)
  - Resuscitation [Fatal]
  - Medical induction of coma [Not Recovered/Not Resolved]

NARRATIVE: CASE EVENT DATE: 20240101
